FAERS Safety Report 25555186 (Version 2)
Quarter: 2025Q3

REPORT INFORMATION
  Report Type: Report from Study
  Country: US (occurrence: US)
  Receive Date: 20250715
  Receipt Date: 20250808
  Transmission Date: 20251020
  Serious: Yes (Death, Hospitalization, Other)
  Sender: AGIOS PHARMACEUTICALS
  Company Number: US-AGIOS-2507US04349

PATIENT
  Age: 28 Year
  Sex: Female

DRUGS (2)
  1. MITAPIVAT [Suspect]
     Active Substance: MITAPIVAT
     Indication: Sickle cell disease
     Route: 048
     Dates: start: 20250401
  2. PROCRIT [Concomitant]
     Active Substance: ERYTHROPOIETIN
     Indication: Product used for unknown indication
     Route: 065

REACTIONS (9)
  - Tachycardia [Fatal]
  - Hypoxia [Fatal]
  - Cardiomegaly [Fatal]
  - Sickle cell anaemia with crisis [Unknown]
  - Hypertransaminasaemia [Unknown]
  - Urinary tract infection [Unknown]
  - Diarrhoea [Unknown]
  - Diarrhoea infectious [Unknown]
  - Atelectasis [Unknown]

NARRATIVE: CASE EVENT DATE: 20250625
